FAERS Safety Report 5427239-0 (Version None)
Quarter: 2007Q3

REPORT INFORMATION
  Report Type: 
  Country: None (occurrence: None)
  Receive Date: 20070828
  Receipt Date: 20070824
  Transmission Date: 20080115
  Serious: Yes (Other)
  Sender: FDA-Public Use
  Company Number: GB-BRISTOL-MYERS SQUIBB COMPANY-13607288

PATIENT
  Age: 40 Year
  Sex: Female
  Weight: 72 kg

DRUGS (10)
  1. SUSTIVA [Suspect]
     Indication: ACQUIRED IMMUNODEFICIENCY SYNDROME
     Route: 048
     Dates: start: 20040716
  2. TRUVADA [Suspect]
     Indication: HIV INFECTION
     Dosage: DOSAGE: EMTRICITABINE + TENOFOVIR 245/200 UNITS
     Route: 048
     Dates: start: 20060424, end: 20070301
  3. CONDOM [Concomitant]
     Indication: CONTRACEPTION
  4. PERINDOPRIL ERBUMINE [Concomitant]
     Indication: HYPERTENSION
     Route: 048
     Dates: start: 20060214, end: 20061211
  5. PERINDOPRIL ERBUMINE [Concomitant]
     Indication: NEPHROPATHY
     Route: 048
     Dates: start: 20060214, end: 20061211
  6. LABETALOL HCL [Concomitant]
     Route: 048
     Dates: start: 20061211, end: 20070301
  7. INDAPAMIDE [Concomitant]
     Indication: HYPERTENSION
     Route: 048
     Dates: start: 20061003, end: 20061010
  8. INDAPAMIDE [Concomitant]
     Indication: NEPHROPATHY
     Route: 048
     Dates: start: 20061003, end: 20061010
  9. COMBIVIR [Concomitant]
     Indication: HIV INFECTION
     Dosage: ZIDOVUDINE 300MG/LAMIVUDINE 150 MG
     Route: 048
     Dates: start: 20070301, end: 20070625
  10. METHYLDOPA [Concomitant]
     Dates: start: 20070301

REACTIONS (3)
  - FOETAL GROWTH RETARDATION [None]
  - NORMAL NEWBORN [None]
  - PREGNANCY [None]
